FAERS Safety Report 4668604-9 (Version None)
Quarter: 2005Q2

REPORT INFORMATION
  Report Type: 
  Country: None (occurrence: None)
  Receive Date: 20050519
  Receipt Date: 20050516
  Transmission Date: 20051028
  Serious: Yes (Death, Life-Threatening, Hospitalization)
  Sender: FDA-Public Use
  Company Number: ZONI002153

PATIENT
  Age: 19 Year
  Sex: Female
  Weight: 56.8 kg

DRUGS (3)
  1. ZONEGRAN [Suspect]
     Indication: PARTIAL SEIZURES
     Dosage: SEE IMAGE
     Route: 048
     Dates: start: 20040501, end: 20050301
  2. ZONEGRAN [Suspect]
     Indication: PARTIAL SEIZURES
     Dosage: SEE IMAGE
     Route: 048
     Dates: start: 20050301, end: 20050501
  3. ORTHO TRI-CYCLEN LO (CILEST) [Concomitant]

REACTIONS (17)
  - ABDOMINAL DISCOMFORT [None]
  - ANOREXIA [None]
  - BRAIN DEATH [None]
  - BRAIN OEDEMA [None]
  - CARDIAC ARREST [None]
  - CHEST DISCOMFORT [None]
  - CHEST PAIN [None]
  - FALL [None]
  - FEELING ABNORMAL [None]
  - FIBRIN D DIMER INCREASED [None]
  - HAEMORRHAGE [None]
  - HYPOCOAGULABLE STATE [None]
  - LIVER FUNCTION TEST ABNORMAL [None]
  - LOSS OF CONSCIOUSNESS [None]
  - MENSTRUAL DISORDER [None]
  - PULMONARY EMBOLISM [None]
  - TROPONIN INCREASED [None]
